FAERS Safety Report 17319803 (Version 1)
Quarter: 2020Q1

REPORT INFORMATION
  Report Type: Spontaneous
  Country: US (occurrence: US)
  Receive Date: 20200125
  Receipt Date: 20200125
  Transmission Date: 20200409
  Serious: Yes (Hospitalization, Other)
  Sender: FDA-Public Use
  Company Number: US-009507513-2001USA008123

PATIENT
  Age: 68 Year
  Sex: Female

DRUGS (9)
  1. ALIMTA [Suspect]
     Active Substance: PEMETREXED DISODIUM
     Dosage: EVERY 3 WEEKS, 4 CYCLES
     Dates: start: 201808, end: 2018
  2. SENNA [Concomitant]
     Active Substance: SENNA LEAF\SENNOSIDES\SENNOSIDES A AND B
     Dosage: UNK
  3. TYLENOL [Concomitant]
     Active Substance: ACETAMINOPHEN
     Dosage: UNK
  4. KEYTRUDA [Suspect]
     Active Substance: PEMBROLIZUMAB
     Dosage: 200 MILLIGRAM, EVERY THREE WEEKS, UNKNOWN NUMBER OF CYCLES
     Route: 042
     Dates: start: 2018
  5. ALIMTA [Suspect]
     Active Substance: PEMETREXED DISODIUM
     Dosage: EVERY 3 WEEKS, UNKNOWN NUMBER OF CYCLES
     Dates: start: 2018
  6. REMERON [Concomitant]
     Active Substance: MIRTAZAPINE
     Dosage: UNK
  7. KEYTRUDA [Suspect]
     Active Substance: PEMBROLIZUMAB
     Indication: NON-SMALL CELL LUNG CANCER
     Dosage: 200 MILLIGRAM, EVERY 3 WEEKS, 4 CYCLES
     Route: 042
     Dates: start: 201808, end: 2018
  8. CARBOPLATIN. [Suspect]
     Active Substance: CARBOPLATIN
     Dosage: EVERY 3 WEEKS, 4 CYCLES
     Dates: start: 201808, end: 2018
  9. BENADRYL [Concomitant]
     Active Substance: DIPHENHYDRAMINE HYDROCHLORIDE
     Dosage: UNK

REACTIONS (3)
  - Malignant neoplasm progression [Not Recovered/Not Resolved]
  - Fatigue [Not Recovered/Not Resolved]
  - Dyspnoea [Not Recovered/Not Resolved]
